FAERS Safety Report 14913249 (Version 4)
Quarter: 2018Q2

REPORT INFORMATION
  Report Type: Report from Study
  Country: IL (occurrence: IL)
  Receive Date: 20180518
  Receipt Date: 20180626
  Transmission Date: 20180711
  Serious: Yes (Hospitalization)
  Sender: FDA-Public Use
  Company Number: IL-EISAI MEDICAL RESEARCH-EC-2018-039809

PATIENT
  Age: 80 Year
  Sex: Female
  Weight: 73.5 kg

DRUGS (16)
  1. PEMBROLIZUMAB. [Suspect]
     Active Substance: PEMBROLIZUMAB
     Indication: METASTATIC RENAL CELL CARCINOMA
     Route: 041
     Dates: start: 20180430
  2. VITAMIN D [Concomitant]
     Active Substance: CHOLECALCIFEROL
  3. REOLIN [Concomitant]
  4. FUSID [Concomitant]
     Active Substance: FUROSEMIDE
  5. AUGMENTIN [Concomitant]
     Active Substance: AMOXICILLIN\CLAVULANATE POTASSIUM
  6. CARDIOC [Concomitant]
  7. VABEN [Concomitant]
     Active Substance: OXAZEPAM
  8. CALCIUM [Concomitant]
     Active Substance: CALCIUM
  9. SIMVASTATIN. [Concomitant]
     Active Substance: SIMVASTATIN
  10. LENVATINIB [Suspect]
     Active Substance: LENVATINIB
     Indication: METASTATIC RENAL CELL CARCINOMA
     Route: 048
     Dates: start: 20180430, end: 20180509
  11. OMEPRADEX [Concomitant]
     Active Substance: OMEPRAZOLE
  12. IPRATROPIUM BROMIDE. [Concomitant]
     Active Substance: IPRATROPIUM BROMIDE
  13. BISACODYL. [Concomitant]
     Active Substance: BISACODYL
  14. BROTIZOLAM [Concomitant]
     Active Substance: BROTIZOLAM
  15. VERAPAMIL [Concomitant]
     Active Substance: VERAPAMIL HYDROCHLORIDE
  16. ZYPREXA [Concomitant]
     Active Substance: OLANZAPINE

REACTIONS (1)
  - Asthenia [Recovered/Resolved]

NARRATIVE: CASE EVENT DATE: 20180509
